FAERS Safety Report 6329243-7 (Version None)
Quarter: 2009Q3

REPORT INFORMATION
  Report Type: 
  Country: None (occurrence: None)
  Receive Date: 20090825
  Receipt Date: 20090825
  Transmission Date: 20100115
  Serious: Yes (Hospitalization)
  Sender: FDA-Public Use
  Company Number: None

PATIENT
  Age: 46 Year
  Sex: Male
  Weight: 132 kg

DRUGS (6)
  1. PACERONE [Suspect]
     Indication: ATRIAL FIBRILLATION
     Dosage: 400MG P.O.
     Route: 048
     Dates: start: 20090809
  2. ASPIRIN [Concomitant]
  3. CARDIZEM [Concomitant]
  4. LOVENOX [Concomitant]
  5. LANOXIN [Concomitant]
  6. NEXIUM [Concomitant]

REACTIONS (2)
  - PULMONARY TOXICITY [None]
  - RESPIRATORY ARREST [None]
